FAERS Safety Report 24977559 (Version 1)
Quarter: 2025Q1

REPORT INFORMATION
  Report Type: Spontaneous
  Country: US (occurrence: US)
  Receive Date: 20250217
  Receipt Date: 20250217
  Transmission Date: 20250408
  Serious: No
  Sender: MYLAN
  Company Number: US-MYLANLABS-2025M1011629

PATIENT
  Age: 57 Year
  Sex: Female
  Weight: 68.04 kg

DRUGS (3)
  1. ESTRADIOL TRANSDERMAL SYSTEM [Suspect]
     Active Substance: ESTRADIOL
     Indication: Hormone replacement therapy
     Dosage: 0.05 MILLIGRAM, QD (PER DAY, ONCE WEEKLY)
     Route: 062
     Dates: start: 20240814
  2. PROGESTERONE [Concomitant]
     Active Substance: PROGESTERONE
     Route: 065
  3. TESTOSTERONE [Concomitant]
     Active Substance: TESTOSTERONE
     Route: 065

REACTIONS (6)
  - Application site rash [Recovering/Resolving]
  - Application site swelling [Recovering/Resolving]
  - Application site pruritus [Recovering/Resolving]
  - Drug ineffective [Unknown]
  - Product dose omission issue [Unknown]
  - Product adhesion issue [Unknown]

NARRATIVE: CASE EVENT DATE: 20250110
